FAERS Safety Report 15428690 (Version 2)
Quarter: 2018Q4

REPORT INFORMATION
  Report Type: Report from Study
  Country: BR (occurrence: BR)
  Receive Date: 20180926
  Receipt Date: 20181008
  Transmission Date: 20190204
  Serious: Yes (Hospitalization, Disabling, Other)
  Sender: FDA-Public Use
  Company Number: BR-ACTELION-A-CH2017-154728

PATIENT
  Age: 40 Year
  Sex: Female

DRUGS (6)
  1. SPIRONOLACTONE. [Concomitant]
     Active Substance: SPIRONOLACTONE
     Dosage: 25 MG, UNK
  2. SILDENAFIL. [Concomitant]
     Active Substance: SILDENAFIL
     Indication: PULMONARY ARTERIAL HYPERTENSION
     Dosage: 80 MG, UNK
     Route: 048
     Dates: start: 200805
  3. PEDIASURE [Concomitant]
     Active Substance: VITAMINS
  4. FUROSEMIDE. [Concomitant]
     Active Substance: FUROSEMIDE
     Indication: RIGHT VENTRICULAR FAILURE
     Dosage: 160 MG, UNK
     Route: 048
     Dates: start: 200805
  5. BOSENTANA [Suspect]
     Active Substance: BOSENTAN
     Indication: PULMONARY ARTERIAL HYPERTENSION
     Dosage: 125 MG, BID
     Route: 048
     Dates: start: 20110530, end: 201808
  6. DILTIAZEM. [Concomitant]
     Active Substance: DILTIAZEM
     Indication: ARRHYTHMIA
     Dosage: 240 MG, UNK
     Route: 048
     Dates: start: 201511, end: 201601

REACTIONS (18)
  - Condition aggravated [Recovering/Resolving]
  - Bedridden [Not Recovered/Not Resolved]
  - Blood bilirubin increased [Not Recovered/Not Resolved]
  - Syncope [Recovering/Resolving]
  - Vomiting [Not Recovered/Not Resolved]
  - Nausea [Not Recovered/Not Resolved]
  - Bilirubin conjugated increased [Not Recovered/Not Resolved]
  - Atrial flutter [Unknown]
  - Abdominal distension [Not Recovered/Not Resolved]
  - Food intolerance [Not Recovered/Not Resolved]
  - Product supply issue [Unknown]
  - Abdominal pain [Not Recovered/Not Resolved]
  - Product dose omission [Unknown]
  - Gamma-glutamyltransferase increased [Not Recovered/Not Resolved]
  - Arrhythmia [Recovering/Resolving]
  - Cardioversion [Unknown]
  - Drug-induced liver injury [Not Recovered/Not Resolved]
  - Malaise [Unknown]

NARRATIVE: CASE EVENT DATE: 201605
